FAERS Safety Report 21074448 (Version 1)
Quarter: 2022Q3

REPORT INFORMATION
  Report Type: Other
  Country: CN (occurrence: None)
  Receive Date: 20220713
  Receipt Date: 20220713
  Transmission Date: 20221027
  Serious: Yes (Other)
  Sender: FDA-Public Use
  Company Number: CN-ROCHE-3133496

PATIENT

DRUGS (4)
  1. BEVACIZUMAB [Suspect]
     Active Substance: BEVACIZUMAB
     Indication: Ovarian cancer
     Dosage: CHEMOTHERAPY WAS GIVEN EVERY 21 DAYS FOR 6 MONTHS.
     Route: 065
  2. PACLITAXEL [Suspect]
     Active Substance: PACLITAXEL
     Indication: Ovarian cancer
     Dosage: CHEMOTHERAPY WAS GIVEN EVERY 21 DAYS FOR 6 MONTHS.
     Route: 041
  3. CARBOPLATIN [Suspect]
     Active Substance: CARBOPLATIN
     Indication: Ovarian cancer
     Dosage: CHEMOTHERAPY WAS GIVEN EVERY 21 DAYS FOR 6 MONTHS.
     Route: 041
  4. SODIUM CHLORIDE [Suspect]
     Active Substance: SODIUM CHLORIDE
     Indication: Ovarian cancer
     Route: 065

REACTIONS (1)
  - Myelosuppression [Unknown]
